FAERS Safety Report 7647318-7 (Version None)
Quarter: 2011Q3

REPORT INFORMATION
  Report Type: 
  Country: None (occurrence: None)
  Receive Date: 20110801
  Receipt Date: 20110721
  Transmission Date: 20111222
  Serious: Yes (Death)
  Sender: FDA-Public Use
  Company Number: CA-ROCHE-791583

PATIENT
  Age: 39 Year

DRUGS (13)
  1. PAXIL [Concomitant]
     Route: 065
  2. VALIUM [Concomitant]
     Route: 065
  3. ATROPINE [Suspect]
     Route: 065
  4. FENTANYL CITRATE [Suspect]
     Route: 008
  5. METHADONE HYDROCHLORIDE [Suspect]
     Route: 065
  6. PERCOCET [Concomitant]
     Route: 065
  7. OXAZEPAM [Suspect]
     Route: 065
  8. OXYCODONE HCL [Suspect]
     Route: 065
  9. RESTORIL [Concomitant]
     Route: 065
  10. CLONAZEPAM [Concomitant]
     Route: 065
  11. FENTANYL [Suspect]
     Route: 065
  12. TYLENOL-500 [Concomitant]
     Route: 065
  13. DIAZEPAM [Suspect]
     Route: 065

REACTIONS (1)
  - TOXICITY TO VARIOUS AGENTS [None]
